FAERS Safety Report 4413418-8 (Version None)
Quarter: 2004Q2

REPORT INFORMATION
  Report Type: 
  Country: None (occurrence: None)
  Receive Date: 20040630
  Receipt Date: 20040302
  Transmission Date: 20050107
  Serious: Yes (Hospitalization)
  Sender: FDA-Public Use
  Company Number: 04P-163-0252019-00

PATIENT
  Age: 62 Year
  Sex: Female

DRUGS (11)
  1. HUMIRA [Suspect]
     Indication: RHEUMATOID ARTHRITIS
     Dosage: 40 MG, 1 IN 1 WK, SUBCUTANEOUS
     Route: 058
     Dates: start: 20031001, end: 20031001
  2. PREDNISONE TAB [Concomitant]
  3. LEFLUNOMIDE [Concomitant]
  4. GABAPENTIN [Concomitant]
  5. ROFECOXIB [Concomitant]
  6. LANSOPRAZOLE [Concomitant]
  7. METHADONE HCL [Concomitant]
  8. PRAMIPEXOLE DIHYDROCHLORIDE [Concomitant]
  9. CLONIDINE HCL [Concomitant]
  10. HYZAAR [Concomitant]
  11. OXYGEN [Concomitant]

REACTIONS (5)
  - ASTHMA [None]
  - BLOOD IRON DECREASED [None]
  - HAEMATOCRIT DECREASED [None]
  - PNEUMONIA [None]
  - UPPER RESPIRATORY TRACT INFECTION [None]
